FAERS Safety Report 9207022 (Version 1)
Quarter: 2013Q2

REPORT INFORMATION
  Report Type: Spontaneous
  Country: US (occurrence: US)
  Receive Date: 20130403
  Receipt Date: 20130403
  Transmission Date: 20140414
  Serious: No
  Sender: FDA-Public Use
  Company Number: US-ASTRAZENECA-2013SE18352

PATIENT
  Age: 5 Month
  Sex: Female

DRUGS (3)
  1. NEXIUM [Suspect]
     Indication: PAIN
     Route: 048
  2. NEXIUM [Suspect]
     Indication: GASTROOESOPHAGEAL REFLUX DISEASE
     Route: 048
  3. PRILOSEC [Suspect]
     Route: 048

REACTIONS (1)
  - Lactose intolerance [Unknown]
